FAERS Safety Report 9681909 (Version 1)
Quarter: 2013Q4

REPORT INFORMATION
  Report Type: Spontaneous
  Country: GB (occurrence: GB)
  Receive Date: 20131111
  Receipt Date: 20131111
  Transmission Date: 20140711
  Serious: Yes (Other)
  Sender: FDA-Public Use
  Company Number: PHHY2013GB124758

PATIENT
  Sex: Male

DRUGS (1)
  1. ALENDRONIC ACID [Suspect]

REACTIONS (1)
  - Nephrolithiasis [Unknown]
